FAERS Safety Report 19808343 (Version 2)
Quarter: 2021Q4

REPORT INFORMATION
  Report Type: Spontaneous
  Country: JP (occurrence: JP)
  Receive Date: 20210909
  Receipt Date: 20211125
  Transmission Date: 20220303
  Serious: Yes (Death, Hospitalization, Other)
  Sender: FDA-Public Use
  Company Number: JP-BRISTOL-MYERS SQUIBB COMPANY-BMS-2021-090364

PATIENT
  Age: 75 Year
  Sex: Female
  Weight: 51.65 kg

DRUGS (23)
  1. OPDIVO [Suspect]
     Active Substance: NIVOLUMAB
     Indication: Gastric cancer
     Dosage: 28 MILLILITER
     Route: 041
     Dates: start: 20210729, end: 20210729
  2. ANAMORELIN [Suspect]
     Active Substance: ANAMORELIN
     Indication: Cachexia
     Dosage: 100 MG, EVERYDAY
     Route: 048
     Dates: start: 20210603, end: 20210806
  3. OXALIPLATIN [Suspect]
     Active Substance: OXALIPLATIN
     Indication: Gastric cancer
     Dosage: 10 MILLILITER
     Route: 041
     Dates: end: 20210603
  4. OXALIPLATIN [Suspect]
     Active Substance: OXALIPLATIN
     Dosage: 20 MILLILITER
     Route: 041
     Dates: end: 20210624
  5. GIMERACIL\OTERACIL\TEGAFUR [Suspect]
     Active Substance: GIMERACIL\OTERACIL\TEGAFUR
     Indication: Gastric cancer
     Dosage: 80 MG
     Route: 048
     Dates: end: 20210616
  6. ISOVORIN [Concomitant]
     Active Substance: LEUCOVORIN CALCIUM
     Indication: Gastric cancer
     Dosage: 200 MG
     Route: 041
     Dates: start: 20210624, end: 20210624
  7. ISOVORIN [Concomitant]
     Active Substance: LEUCOVORIN CALCIUM
     Dosage: 50 MG
     Route: 041
     Dates: start: 20210624, end: 20210624
  8. FLUOROURACIL [Concomitant]
     Active Substance: FLUOROURACIL
     Indication: Gastric cancer
     Dosage: 2000 MG
     Route: 065
     Dates: start: 20210624, end: 20210624
  9. FLUOROURACIL [Concomitant]
     Active Substance: FLUOROURACIL
     Dosage: 1250 MG
     Route: 065
     Dates: start: 20210624, end: 20210624
  10. CYRAMZA [Concomitant]
     Active Substance: RAMUCIRUMAB
     Indication: Gastric cancer
     Dosage: 40 MILLILITER
     Route: 041
     Dates: start: 20210712, end: 20210712
  11. ABRAXANE [Concomitant]
     Active Substance: PACLITAXEL
     Indication: Gastric cancer
     Dosage: 100 MG
     Route: 041
     Dates: start: 20210712, end: 20210712
  12. VONOPRAZAN FUMARATE [Concomitant]
     Active Substance: VONOPRAZAN FUMARATE
     Indication: Product used for unknown indication
     Dosage: 20 MG, EVERYDAY
     Route: 048
     Dates: end: 20210624
  13. RINDERON [BETAMETHASONE DIPROPIONATE] [Concomitant]
     Indication: Product used for unknown indication
     Dosage: 1 MG, EVERYDAY
     Route: 048
     Dates: start: 20210603, end: 20210724
  14. ALFACALCIDOL [Concomitant]
     Active Substance: ALFACALCIDOL
     Indication: Product used for unknown indication
     Dosage: 0.5 UG, EVERYDAY
     Route: 048
     Dates: start: 20210603, end: 20210724
  15. REBAMIPIDE [Concomitant]
     Active Substance: REBAMIPIDE
     Indication: Product used for unknown indication
     Dosage: 300 MG, EVERYDAY
     Route: 048
     Dates: end: 20210707
  16. CINAL [ASCORBIC ACID;CALCIUM PANTOTHENATE] [Concomitant]
     Indication: Product used for unknown indication
     Dosage: 2 DF, EVERYDAY
     Route: 048
     Dates: start: 20210603, end: 20210707
  17. URSODIOL [Concomitant]
     Active Substance: URSODIOL
     Indication: Product used for unknown indication
     Dosage: 300 MG, EVERYDAY
     Route: 048
     Dates: start: 20210607, end: 20210613
  18. AMMONIUM GLYCYRRHIZATE\CYSTEINE HYDROCHLORIDE\GLYCINE [Concomitant]
     Active Substance: AMMONIUM GLYCYRRHIZATE\CYSTEINE HYDROCHLORIDE\GLYCINE
     Indication: Product used for unknown indication
     Dosage: 6 DF, EVERYDAY
     Route: 048
     Dates: start: 20210607, end: 20210613
  19. CLOPIDOGREL [Concomitant]
     Active Substance: CLOPIDOGREL BISULFATE
     Indication: Product used for unknown indication
     Dosage: 75 MG, EVERYDAY
     Route: 048
     Dates: end: 20210729
  20. AMLODIPINE BESYLATE\IRBESARTAN [Concomitant]
     Active Substance: AMLODIPINE BESYLATE\IRBESARTAN
     Indication: Product used for unknown indication
     Dosage: 1 DF, EVERYDAY
     Route: 048
     Dates: end: 20210729
  21. DECADRON [Concomitant]
     Active Substance: DEXAMETHASONE
     Indication: Product used for unknown indication
     Dosage: 4 MG, EVERYDAY
     Route: 048
     Dates: start: 20210604, end: 20210606
  22. DECADRON [Concomitant]
     Active Substance: DEXAMETHASONE
     Dosage: 4 MG, EVERYDAY
     Route: 048
     Dates: start: 20210625, end: 20210626
  23. FUROSEMIDE [Concomitant]
     Active Substance: FUROSEMIDE
     Indication: Product used for unknown indication
     Dosage: 20 MG, EVERYDAY
     Route: 065
     Dates: start: 20210724, end: 20210813

REACTIONS (6)
  - Malignant neoplasm progression [Fatal]
  - Myelosuppression [Not Recovered/Not Resolved]
  - Anaemia [Not Recovered/Not Resolved]
  - Atrial fibrillation [Recovering/Resolving]
  - Decreased appetite [Recovering/Resolving]
  - Oedema [Not Recovered/Not Resolved]

NARRATIVE: CASE EVENT DATE: 20210607
